FAERS Safety Report 7473223-5 (Version None)
Quarter: 2011Q2

REPORT INFORMATION
  Report Type: 
  Country: None (occurrence: None)
  Receive Date: 20110511
  Receipt Date: 20110506
  Transmission Date: 20111010
  Serious: Yes (Other)
  Sender: FDA-Public Use
  Company Number: B0717512A

PATIENT
  Sex: Female

DRUGS (5)
  1. DIAZEPAM [Concomitant]
     Indication: ANXIETY
     Route: 048
     Dates: start: 20110325
  2. PROPRANOLOL [Concomitant]
     Indication: ANXIETY
     Route: 048
     Dates: start: 20110325
  3. PAROXETINE HCL [Suspect]
     Indication: DEPRESSION
  4. PAROXETINE HCL [Suspect]
     Route: 048
     Dates: start: 20110301
  5. ZOPICLONE [Concomitant]
     Indication: ANXIETY
     Route: 048
     Dates: start: 20110325

REACTIONS (6)
  - WITHDRAWAL SYNDROME [None]
  - ANXIETY [None]
  - MALAISE [None]
  - PANIC ATTACK [None]
  - BURNING SENSATION [None]
  - PARAESTHESIA [None]
